FAERS Safety Report 15789437 (Version 4)
Quarter: 2019Q1

REPORT INFORMATION
  Report Type: Report from Study
  Country: US (occurrence: US)
  Receive Date: 20190104
  Receipt Date: 20190306
  Transmission Date: 20190417
  Serious: Yes (Hospitalization, Other)
  Sender: FDA-Public Use
  Company Number: US-GLAXOSMITHKLINE-US2018GSK235246

PATIENT
  Sex: Male

DRUGS (1)
  1. BUPROPION HYDROCHLORIDE. [Suspect]
     Active Substance: BUPROPION HYDROCHLORIDE
     Indication: PRODUCT USED FOR UNKNOWN INDICATION
     Dosage: UNK
     Dates: start: 2018

REACTIONS (12)
  - Dysgeusia [Unknown]
  - Abdominal distension [Unknown]
  - Increased upper airway secretion [Unknown]
  - Pyrexia [Unknown]
  - Injection site pain [Unknown]
  - Urinary tract infection [Unknown]
  - Tremor [Recovering/Resolving]
  - Pneumonia [Unknown]
  - Cardiac murmur [Unknown]
  - Insomnia [Unknown]
  - Oropharyngeal pain [Unknown]
  - Skin lesion [Unknown]

NARRATIVE: CASE EVENT DATE: 2018
